FAERS Safety Report 9849173 (Version 1)
Quarter: 2014Q1

REPORT INFORMATION
  Report Type: Spontaneous
  Country: US (occurrence: None)
  Receive Date: 20140124
  Receipt Date: 20140124
  Transmission Date: 20141002
  Serious: Yes (Hospitalization)
  Sender: FDA-Public Use
  Company Number: None

PATIENT
  Age: 15 Year
  Sex: Female
  Weight: 69.3 kg

DRUGS (3)
  1. DAUNORUBICIN [Suspect]
     Dates: end: 20140102
  2. METHOTREXATE [Suspect]
     Dates: end: 20131224
  3. VINCRISTINE SULFATE [Suspect]
     Dates: end: 20131231

REACTIONS (6)
  - Mucosal inflammation [None]
  - Affect lability [None]
  - Rash [None]
  - Confusional state [None]
  - Hepatic encephalopathy [None]
  - International normalised ratio increased [None]
